FAERS Safety Report 19481541 (Version 6)
Quarter: 2022Q4

REPORT INFORMATION
  Report Type: Spontaneous
  Country: PL (occurrence: PL)
  Receive Date: 20210701
  Receipt Date: 20221111
  Transmission Date: 20230113
  Serious: Yes (Other)
  Sender: FDA-Public Use
  Company Number: PL-GEN-2021-1369

PATIENT
  Age: 26 Year
  Sex: Male

DRUGS (28)
  1. ACETAMINOPHEN [Interacting]
     Active Substance: ACETAMINOPHEN
     Indication: Levator syndrome
     Dosage: UNK
     Route: 065
  2. ACETAMINOPHEN [Interacting]
     Active Substance: ACETAMINOPHEN
     Indication: Proctalgia
  3. SERTRALINE [Interacting]
     Active Substance: SERTRALINE HYDROCHLORIDE
     Indication: Depression
     Dosage: 100 MILLIGRAM, ONCE A DAY AT NIGHT
     Route: 065
  4. SERTRALINE [Interacting]
     Active Substance: SERTRALINE HYDROCHLORIDE
     Indication: Insomnia
  5. BUTYLSCOPOLAMINE BROMIDE [Interacting]
     Active Substance: BUTYLSCOPOLAMINE BROMIDE
     Indication: Product used for unknown indication
     Dosage: 0.75 MG 3 TIMES DAILY, REDUCED TO 0.7
     Route: 048
  6. BUTYLSCOPOLAMINE BROMIDE [Interacting]
     Active Substance: BUTYLSCOPOLAMINE BROMIDE
     Dosage: UNK
     Route: 065
  7. IBUPROFEN [Interacting]
     Active Substance: IBUPROFEN
     Indication: Levator syndrome
     Dosage: UNK
     Route: 065
  8. IBUPROFEN [Interacting]
     Active Substance: IBUPROFEN
     Indication: Proctalgia
  9. IBUPROFEN [Interacting]
     Active Substance: IBUPROFEN
     Indication: Pain
  10. KETOPROFEN [Interacting]
     Active Substance: KETOPROFEN
     Indication: Levator syndrome
     Dosage: UNK
     Route: 065
  11. KETOPROFEN [Interacting]
     Active Substance: KETOPROFEN
     Indication: Proctalgia
  12. KETOPROFEN [Interacting]
     Active Substance: KETOPROFEN
     Indication: Pain
  13. METAMIZOLE [Interacting]
     Active Substance: METAMIZOLE
     Indication: Levator syndrome
     Dosage: UNK
     Route: 065
  14. METAMIZOLE [Interacting]
     Active Substance: METAMIZOLE
     Indication: Proctalgia
  15. METAMIZOLE [Interacting]
     Active Substance: METAMIZOLE
     Indication: Pain
  16. MIANSERIN [Interacting]
     Active Substance: MIANSERIN
     Indication: Depression
     Dosage: 30 MILLIGRAM, ONCE A DAY (PER NIGHT/BEFORE GOING TO BED)
     Route: 065
  17. MIANSERIN [Interacting]
     Active Substance: MIANSERIN
     Indication: Insomnia
  18. OMEPRAZOLE [Interacting]
     Active Substance: OMEPRAZOLE
     Indication: Product used for unknown indication
     Dosage: UNK
     Route: 048
  19. OMEPRAZOLE [Suspect]
     Active Substance: OMEPRAZOLE
     Indication: Product used for unknown indication
     Dosage: UNK
     Route: 065
  20. BUTYLSCOPOLAMINE BROMIDE [Suspect]
     Active Substance: BUTYLSCOPOLAMINE BROMIDE
     Indication: Product used for unknown indication
     Dosage: UNK
     Route: 065
  21. AGOMELATINE [Concomitant]
     Active Substance: AGOMELATINE
     Indication: Product used for unknown indication
     Dosage: UNK
     Route: 065
  22. CLONIDINE [Concomitant]
     Active Substance: CLONIDINE
     Indication: Product used for unknown indication
     Dosage: 0.75 MG 3 TIMES DAILY, REDUCED TO 0.75
     Route: 048
  23. ACETAMINOPHEN [Concomitant]
     Active Substance: ACETAMINOPHEN
     Indication: Product used for unknown indication
     Dosage: UNK
     Route: 065
  24. BUTYLSCOPOLAMINE BROMIDE [Concomitant]
     Active Substance: BUTYLSCOPOLAMINE BROMIDE
     Indication: Product used for unknown indication
     Dosage: UNK
     Route: 065
  25. OMEPRAZOLE [Concomitant]
     Active Substance: OMEPRAZOLE
     Indication: Product used for unknown indication
     Dosage: UNK
     Route: 065
  26. KETOPROFEN [Concomitant]
     Active Substance: KETOPROFEN
     Indication: Product used for unknown indication
     Dosage: UNK
     Route: 065
  27. IBUPROFEN [Concomitant]
     Active Substance: IBUPROFEN
     Indication: Product used for unknown indication
     Dosage: UNK
     Route: 065
  28. METAMIZOLE [Concomitant]
     Active Substance: METAMIZOLE
     Indication: Product used for unknown indication
     Dosage: UNK
     Route: 065

REACTIONS (6)
  - Proctalgia [Recovered/Resolved]
  - Paroxysmal extreme pain disorder [Recovered/Resolved]
  - Drug interaction [Unknown]
  - Levator syndrome [Recovered/Resolved]
  - Labelled drug-drug interaction medication error [Unknown]
  - Drug ineffective [Unknown]
